FAERS Safety Report 23825594 (Version 1)
Quarter: 2024Q2

REPORT INFORMATION
  Report Type: Spontaneous
  Country: US (occurrence: US)
  Receive Date: 20240507
  Receipt Date: 20240507
  Transmission Date: 20240716
  Serious: Yes (Other)
  Sender: FDA-Public Use
  Company Number: US-HIKMA PHARMACEUTICALS-US-H14001-24-02457

PATIENT
  Age: 67 Year
  Sex: Female

DRUGS (1)
  1. AMIKACIN [Suspect]
     Active Substance: AMIKACIN
     Indication: Mycobacterium avium complex infection
     Dosage: UNK UNK, 3W
     Route: 042
     Dates: end: 202402

REACTIONS (4)
  - Tinnitus [Unknown]
  - Deafness neurosensory [Unknown]
  - Drug intolerance [Unknown]
  - Drug ineffective [Unknown]
